FAERS Safety Report 10977815 (Version 1)
Quarter: 2015Q1

REPORT INFORMATION
  Report Type: Spontaneous
  Country: US (occurrence: None)
  Receive Date: 20150331
  Receipt Date: 20150331
  Transmission Date: 20150721
  Serious: Yes (Other)
  Sender: FDA-Public Use
  Company Number: 2015AKN00167

PATIENT
  Age: 15 Year
  Sex: Male

DRUGS (1)
  1. MYORISAN [Suspect]
     Active Substance: ISOTRETINOIN
     Indication: ACNE CYSTIC
     Dosage: 1X/DAY
     Dates: start: 201501, end: 20150304

REACTIONS (1)
  - Depression [None]

NARRATIVE: CASE EVENT DATE: 2015
